FAERS Safety Report 13314034 (Version 1)
Quarter: 2017Q1

REPORT INFORMATION
  Report Type: Spontaneous
  Country: HR (occurrence: HR)
  Receive Date: 20170309
  Receipt Date: 20170309
  Transmission Date: 20170428
  Serious: Yes (Death, Other)
  Sender: FDA-Public Use
  Company Number: HR-JNJFOC-20170309523

PATIENT
  Age: 73 Year
  Sex: Female

DRUGS (1)
  1. XARELTO [Suspect]
     Active Substance: RIVAROXABAN
     Indication: CEREBROVASCULAR ACCIDENT
     Route: 048

REACTIONS (5)
  - Melaena [Unknown]
  - Disease complication [Fatal]
  - Gastrointestinal haemorrhage [Unknown]
  - Haematemesis [Unknown]
  - Anaemia [Unknown]

NARRATIVE: CASE EVENT DATE: 201602
